FAERS Safety Report 18631603 (Version 1)
Quarter: 2020Q4

REPORT INFORMATION
  Report Type: Spontaneous
  Country: FR (occurrence: FR)
  Receive Date: 20201218
  Receipt Date: 20201218
  Transmission Date: 20210114
  Serious: Yes (Other)
  Sender: FDA-Public Use
  Company Number: FR-AUROBINDO-AUR-APL-2020-027988

PATIENT
  Age: 4 Day
  Sex: Female
  Weight: 1.79 kg

DRUGS (15)
  1. PREDNISONE. [Suspect]
     Active Substance: PREDNISONE
     Indication: PRODUCT USED FOR UNKNOWN INDICATION
     Dosage: 80 MILLIGRAM, ONCE A DAY
     Route: 064
     Dates: start: 2017
  2. VALACICLOVIR [Suspect]
     Active Substance: VALACYCLOVIR HYDROCHLORIDE
     Indication: PRODUCT USED FOR UNKNOWN INDICATION
     Dosage: 500 MILLIGRAM, ONCE A DAY
     Route: 064
     Dates: start: 2017
  3. DEXAMETHASONE. [Suspect]
     Active Substance: DEXAMETHASONE
     Indication: HODGKIN^S DISEASE
     Dosage: 10 MILLIGRAM, (ON DAY1 AND DAY 15 OF THERAPY)
     Route: 064
     Dates: start: 20171108
  4. GLUCOSE [Suspect]
     Active Substance: DEXTROSE
     Indication: PRODUCT USED FOR UNKNOWN INDICATION
     Dosage: 20 MILLILITER, (USED AS A VEHICLE FOR DOXORUBICIN DRUG ADMINISTRATION))
     Route: 064
     Dates: start: 20171108
  5. GLUCOSE [Suspect]
     Active Substance: DEXTROSE
     Dosage: 250 MILLILITER, (USED AS A VEHICLE FOR DACARBAZINE DRUG ADMINISTRATION))
     Route: 064
     Dates: start: 20171108
  6. SODIUM CHLORIDE. [Suspect]
     Active Substance: SODIUM CHLORIDE
     Indication: HODGKIN^S DISEASE
     Dosage: 20 MILLILITER, ONCE A DAY (USED AS A VEHICLE FOR VINBLASTIN DRUG ADMINISTRATION)
     Route: 064
     Dates: start: 20171108
  7. BLEOMYCIN [Suspect]
     Active Substance: BLEOMYCIN SULFATE
     Indication: HODGKIN^S DISEASE
     Dosage: 10 MG/M2, CYCLICAL (IN 20 ML NACL ON DAY 1 AND DAY 15 OF THERAPY)
     Route: 064
     Dates: start: 20171108
  8. VINBLASTINE [Suspect]
     Active Substance: VINBLASTINE
     Indication: HODGKIN^S DISEASE
     Dosage: 5 MG/M2, CYCLICAL (IN 20 ML NACL ON DAY 1 AND DAY 15 OF THERAPY)
     Route: 064
     Dates: start: 20171108
  9. ONDANSETRON [Suspect]
     Active Substance: ONDANSETRON
     Indication: PROPHYLAXIS OF NAUSEA AND VOMITING
     Dosage: 8 MILLIGRAM, TWO TIMES A DAY
     Route: 064
     Dates: start: 2017, end: 201711
  10. DACARBAZINE. [Suspect]
     Active Substance: DACARBAZINE
     Indication: HODGKIN^S DISEASE
     Dosage: 375 MILLIGRAM/SQ. METER, ( (IN 250 ML OF GLUCOSE 5% ON DAY1 AND DAY 15 OF THERAPY)
     Route: 064
     Dates: start: 20171108
  11. ENOXAPARIN [Suspect]
     Active Substance: ENOXAPARIN
     Indication: PRODUCT USED FOR UNKNOWN INDICATION
     Dosage: 4000 INTERNATIONAL UNIT, TWO TIMES A DAY
     Route: 064
     Dates: start: 2017
  12. DOXORUBICIN POWDER FOR SOLUTION FOR INFUSION [Suspect]
     Active Substance: DOXORUBICIN
     Indication: HODGKIN^S DISEASE
     Dosage: 25 MG/M2, CYCLICAL (IN 20 ML OF GLUCOSE 5% ON DAY 1 AND DAY 15 OF THERAPY)
     Route: 064
     Dates: start: 20171108
  13. LANSOPRAZOLE. [Suspect]
     Active Substance: LANSOPRAZOLE
     Indication: PRODUCT USED FOR UNKNOWN INDICATION
     Dosage: 30 MILLIGRAM, ONCE A DAY
     Route: 064
     Dates: start: 2017
  14. PREDNISONE. [Suspect]
     Active Substance: PREDNISONE
     Dosage: 40 MILLIGRAM, ONCE A DAY
     Route: 064
     Dates: end: 201711
  15. AMOXICILLIN. [Suspect]
     Active Substance: AMOXICILLIN
     Indication: ANTIBIOTIC THERAPY
     Dosage: UNK
     Route: 064

REACTIONS (2)
  - Premature baby [Unknown]
  - Foetal exposure during pregnancy [Unknown]

NARRATIVE: CASE EVENT DATE: 2017
